FAERS Safety Report 17070590 (Version 2)
Quarter: 2020Q1

REPORT INFORMATION
  Report Type: Spontaneous
  Country: JP (occurrence: JP)
  Receive Date: 20191125
  Receipt Date: 20200122
  Transmission Date: 20200409
  Serious: Yes (Other)
  Sender: FDA-Public Use
  Company Number: JP-PFIZER INC-2019499284

PATIENT
  Age: 65 Year
  Sex: Male
  Weight: 75 kg

DRUGS (2)
  1. ZITHROMAC 250MG [Suspect]
     Active Substance: AZITHROMYCIN DIHYDRATE
     Indication: PERIODONTITIS
  2. ZITHROMAC 250MG [Suspect]
     Active Substance: AZITHROMYCIN DIHYDRATE
     Indication: TOOTH ABSCESS
     Dosage: 500 MG, 1X/DAY
     Route: 048
     Dates: start: 20191112, end: 20191113

REACTIONS (1)
  - Alcohol poisoning [Recovered/Resolved]

NARRATIVE: CASE EVENT DATE: 20191114
